FAERS Safety Report 9150017 (Version 1)
Quarter: 2013Q1

REPORT INFORMATION
  Report Type: Spontaneous
  Country: US (occurrence: None)
  Receive Date: 20130228
  Receipt Date: 20130228
  Transmission Date: 20140127
  Serious: Yes (Hospitalization)
  Sender: FDA-Public Use
  Company Number: None

PATIENT
  Age: 75 Year
  Sex: Male
  Weight: 76.3 kg

DRUGS (1)
  1. WARFARIN [Suspect]
     Indication: ATRIAL FIBRILLATION
     Route: 048

REACTIONS (7)
  - Left ventricular hypertrophy [None]
  - Mitral valve incompetence [None]
  - Aortic valve incompetence [None]
  - Diastolic dysfunction [None]
  - Embolic stroke [None]
  - Transient ischaemic attack [None]
  - Blindness unilateral [None]
